FAERS Safety Report 8423626-7 (Version None)
Quarter: 2012Q2

REPORT INFORMATION
  Report Type: 
  Country: None (occurrence: None)
  Receive Date: 20120608
  Receipt Date: 20120606
  Transmission Date: 20120825
  Serious: No
  Sender: FDA-Public Use
  Company Number: US-PFIZER INC-2012136493

PATIENT
  Sex: Female
  Weight: 78.458 kg

DRUGS (7)
  1. ALBUTEROL [Concomitant]
     Indication: ASTHMA
     Dosage: UNK
     Route: 055
  2. EFFEXOR XR [Suspect]
     Dosage: 150 MG, 1X/DAY
     Route: 048
     Dates: start: 20120101, end: 20120101
  3. EFFEXOR XR [Suspect]
     Indication: ANXIETY
     Dosage: 37.5 MG, 1X/DAY
     Route: 048
     Dates: start: 20120201, end: 20120101
  4. EFFEXOR XR [Suspect]
     Indication: DEPRESSION
     Dosage: 75 MG, 1X/DAY
     Route: 048
     Dates: start: 20120101, end: 20120101
  5. EFFEXOR XR [Suspect]
     Dosage: 112.5 MG, 1X/DAY
     Route: 048
     Dates: start: 20120101
  6. AMLODIPINE [Concomitant]
     Indication: HYPERTENSION
     Dosage: 5 MG, UNK
  7. ZYRTEC [Concomitant]
     Indication: HYPERSENSITIVITY
     Dosage: 10 MG, UNK

REACTIONS (4)
  - NIGHT SWEATS [None]
  - DRUG INEFFECTIVE [None]
  - DRUG INTOLERANCE [None]
  - DRY MOUTH [None]
